FAERS Safety Report 6222666-6 (Version None)
Quarter: 2009Q2

REPORT INFORMATION
  Report Type: 
  Country: None (occurrence: None)
  Receive Date: 20090611
  Receipt Date: 20090529
  Transmission Date: 20091009
  Serious: Yes (Life-Threatening, Hospitalization, Other)
  Sender: FDA-Public Use
  Company Number: FR-ELI_LILLY_AND_COMPANY-FR200905005944

PATIENT
  Sex: Female

DRUGS (5)
  1. PROZAC [Suspect]
     Indication: DEPRESSION
     Dosage: 40 MG, DAILY (1/D)
     Route: 048
     Dates: end: 20090305
  2. LAROXYL [Concomitant]
     Indication: DEPRESSION
     Dosage: 20 GTT, DAILY (1/D)
     Route: 048
     Dates: end: 20090305
  3. DOGMATIL [Concomitant]
     Indication: DEPRESSION
     Dosage: 100 MG, DAILY (1/D)
     Route: 048
     Dates: end: 20090305
  4. LEXOMIL [Concomitant]
     Indication: DEPRESSION
     Dosage: 6 MG, DAILY (1/D)
     Route: 048
     Dates: end: 20090305
  5. NOCTRAN 10 [Concomitant]
     Indication: DEPRESSION
     Dosage: 10 MG, DAILY (1/D)
     Route: 048
     Dates: end: 20090305

REACTIONS (7)
  - ALTERED STATE OF CONSCIOUSNESS [None]
  - COMA [None]
  - PNEUMONIA ASPIRATION [None]
  - RENAL FAILURE ACUTE [None]
  - RHABDOMYOLYSIS [None]
  - SUICIDE ATTEMPT [None]
  - URINARY TRACT INFECTION [None]
